FAERS Safety Report 4888248-3 (Version None)
Quarter: 2006Q1

REPORT INFORMATION
  Report Type: 
  Country: None (occurrence: None)
  Receive Date: 20060119
  Receipt Date: 20060110
  Transmission Date: 20060701
  Serious: Yes (Disabling)
  Sender: FDA-Public Use
  Company Number: 200610201BWH

PATIENT
  Age: 67 Year
  Sex: Male
  Weight: 110.2241 kg

DRUGS (7)
  1. SORAFENIB [Suspect]
     Indication: METASTATIC RENAL CELL CARCINOMA
     Dosage: 400 MG, BID, ORAL
     Route: 048
     Dates: start: 20050912
  2. ACTOS [Concomitant]
  3. LOVASTIN [Concomitant]
  4. METFORMIN [Concomitant]
  5. LOTREL [Concomitant]
  6. LANTUS [Concomitant]
  7. FLONASE [Concomitant]

REACTIONS (1)
  - OEDEMA PERIPHERAL [None]
